FAERS Safety Report 4668625-6 (Version None)
Quarter: 2005Q2

REPORT INFORMATION
  Report Type: 
  Country: None (occurrence: None)
  Receive Date: 20050519
  Receipt Date: 20050510
  Transmission Date: 20051028
  Serious: Yes (Hospitalization)
  Sender: FDA-Public Use
  Company Number: 2005-0008264

PATIENT
  Age: 40 Year
  Sex: Male
  Weight: 81.6475 kg

DRUGS (3)
  1. EMTRICITABINE (EMTRICITABINE) [Suspect]
     Indication: HIV INFECTION
     Dosage: 200 MG 1 IN 1 D, ORAL
     Route: 048
     Dates: start: 20040913, end: 20050401
  2. TENOFOVIR DISOPROXIL FUMARATE (TENOFOVIR DISOPROXYL FUMARATE) [Suspect]
     Indication: HIV INFECTION
     Dosage: 300 MG, 1 IN 1 D, ORAL
     Route: 048
     Dates: start: 20040913, end: 20050401
  3. KALETRA [Suspect]
     Indication: HIV INFECTION
     Dosage: 500 MG, 2 IN 1 D, ORAL
     Route: 048
     Dates: start: 20040913, end: 20050401

REACTIONS (5)
  - BLOOD TRIGLYCERIDES INCREASED [None]
  - DIVERTICULUM [None]
  - DUODENITIS [None]
  - PANCREATITIS [None]
  - RENAL CYST [None]
